FAERS Safety Report 8033960-0 (Version None)
Quarter: 2012Q1

REPORT INFORMATION
  Report Type: 
  Country: None (occurrence: None)
  Receive Date: 20120110
  Receipt Date: 20120105
  Transmission Date: 20120608
  Serious: Yes (Hospitalization, Disabling)
  Sender: FDA-Public Use
  Company Number: US-MERCK-1108USA02801

PATIENT
  Age: 53 Year
  Sex: Female

DRUGS (8)
  1. BORON (UNSPECIFIED) [Concomitant]
     Route: 065
     Dates: start: 19950101
  2. BONIVA [Suspect]
     Indication: OSTEOPOROSIS
     Route: 048
     Dates: start: 20061001, end: 20090901
  3. VITAMINS (UNSPECIFIED) [Concomitant]
     Route: 065
     Dates: start: 19950101
  4. OMEPRAZOLE [Concomitant]
     Route: 065
     Dates: start: 19940101
  5. FOSAMAX [Suspect]
     Indication: OSTEOPOROSIS
     Route: 048
     Dates: start: 19951101, end: 20010101
  6. PRILOSEC [Concomitant]
     Route: 065
     Dates: start: 19940101
  7. FOSAMAX [Suspect]
     Route: 048
     Dates: start: 20010101, end: 20061001
  8. MAGNESIUM (UNSPECIFIED) [Concomitant]
     Route: 065
     Dates: start: 19950101

REACTIONS (7)
  - ADVERSE EVENT [None]
  - HYPOTHYROIDISM [None]
  - FRACTURE DELAYED UNION [None]
  - LOW TURNOVER OSTEOPATHY [None]
  - OVARIAN DISORDER [None]
  - HYPERTENSION [None]
  - FEMUR FRACTURE [None]
